FAERS Safety Report 25767605 (Version 1)
Quarter: 2025Q3

REPORT INFORMATION
  Report Type: Spontaneous
  Country: RS (occurrence: RS)
  Receive Date: 20250905
  Receipt Date: 20250905
  Transmission Date: 20251021
  Serious: Yes (Other)
  Sender: VERITY PHARMACEUTICALS INC.
  Company Number: RS-VER-202500002

PATIENT
  Age: 72 Year
  Sex: Male

DRUGS (2)
  1. TRIPTORELIN PAMOATE [Suspect]
     Active Substance: TRIPTORELIN PAMOATE
     Indication: Product used for unknown indication
     Route: 065
     Dates: start: 202501
  2. Apalutamid [Concomitant]
     Indication: Product used for unknown indication
     Route: 065

REACTIONS (1)
  - Osteosarcoma recurrent [Unknown]
